FAERS Safety Report 15656176 (Version 1)
Quarter: 2018Q4

REPORT INFORMATION
  Report Type: Spontaneous
  Country: JP (occurrence: JP)
  Receive Date: 20181126
  Receipt Date: 20181126
  Transmission Date: 20190205
  Serious: Yes (Other)
  Sender: FDA-Public Use
  Company Number: JP-JNJFOC-20181124597

PATIENT
  Sex: Male

DRUGS (1)
  1. ZYTIGA [Suspect]
     Active Substance: ABIRATERONE ACETATE
     Indication: PROSTATE CANCER
     Route: 048

REACTIONS (7)
  - Alanine aminotransferase increased [Unknown]
  - Blood alkaline phosphatase increased [Unknown]
  - Anaemia [Unknown]
  - Aspartate aminotransferase increased [Unknown]
  - Hypertension [Unknown]
  - Neutrophil count decreased [Unknown]
  - Malaise [Unknown]
